FAERS Safety Report 5598311-X (Version None)
Quarter: 2008Q1

REPORT INFORMATION
  Report Type: 
  Country: None (occurrence: None)
  Receive Date: 20080122
  Receipt Date: 20080117
  Transmission Date: 20080703
  Serious: Yes (Hospitalization)
  Sender: FDA-Public Use
  Company Number: A0703863A

PATIENT
  Age: 59 Year
  Sex: Male

DRUGS (18)
  1. PAXIL [Suspect]
     Indication: DEPRESSION
     Route: 048
     Dates: start: 20000101, end: 20040101
  2. WELLBUTRIN XL [Suspect]
     Indication: DEPRESSION
     Dosage: 300MG PER DAY
     Route: 048
     Dates: start: 20040101
  3. CYMBALTA [Suspect]
     Indication: DEPRESSION
     Dosage: 30MG TWICE PER DAY
     Route: 048
     Dates: start: 20071101, end: 20080107
  4. TOPROL-XL [Concomitant]
  5. AGGRENOX [Concomitant]
  6. DEMADEX [Concomitant]
  7. AVAPRO [Concomitant]
  8. INSPRA [Concomitant]
  9. ZOCOR [Concomitant]
  10. FOLIC ACID [Concomitant]
  11. NEURONTIN [Concomitant]
  12. BORAGE OIL [Concomitant]
  13. MOBIC [Concomitant]
  14. ALLEGRA [Concomitant]
  15. ARICEPT [Concomitant]
  16. MULTIPLE VITAMIN [Concomitant]
  17. ASCORBIC ACID [Concomitant]
  18. EYE MEDICATION [Concomitant]

REACTIONS (16)
  - CARDIAC DISORDER [None]
  - CARDIAC FAILURE [None]
  - CONVULSION [None]
  - DIZZINESS [None]
  - DYSPNOEA [None]
  - EJECTION FRACTION DECREASED [None]
  - EYE ROLLING [None]
  - HALLUCINATION [None]
  - HEADACHE [None]
  - HOT FLUSH [None]
  - NAUSEA [None]
  - NIGHTMARE [None]
  - PALPITATIONS [None]
  - VISION BLURRED [None]
  - VOMITING [None]
  - WEIGHT INCREASED [None]
